FAERS Safety Report 11110321 (Version 1)
Quarter: 2015Q2

REPORT INFORMATION
  Report Type: Report from Study
  Country: US (occurrence: US)
  Receive Date: 20150513
  Receipt Date: 20150513
  Transmission Date: 20150821
  Serious: Yes (Hospitalization)
  Sender: FDA-Public Use
  Company Number: US-PFIZER INC-2015158949

PATIENT
  Age: 52 Year

DRUGS (2)
  1. RITUXAN [Suspect]
     Active Substance: RITUXIMAB
     Indication: CHRONIC LYMPHOCYTIC LEUKAEMIA
     Dosage: 375 MG/M2, Q 2WEEKS X4 Q 6 MONTHS
     Route: 042
     Dates: start: 20120101, end: 20121018
  2. SOLU-MEDROL [Suspect]
     Active Substance: METHYLPREDNISOLONE SODIUM SUCCINATE
     Indication: CHRONIC LYMPHOCYTIC LEUKAEMIA
     Dosage: 2000 MG, WEEKLY
     Route: 042
     Dates: start: 20120101, end: 20121024

REACTIONS (1)
  - Mycobacterial infection [Unknown]

NARRATIVE: CASE EVENT DATE: 20120401
